FAERS Safety Report 9061288 (Version 1)
Quarter: 2013Q1

REPORT INFORMATION
  Report Type: Spontaneous
  Country: US (occurrence: None)
  Receive Date: 20130208
  Receipt Date: 20130208
  Transmission Date: 20140127
  Serious: No
  Sender: FDA-Public Use
  Company Number: None

PATIENT
  Age: 71 Year
  Sex: Female
  Weight: 68.04 kg

DRUGS (4)
  1. MONTELUKAST SODIUM [Suspect]
     Indication: ASTHMA
     Route: 048
     Dates: start: 20130122, end: 20130131
  2. IPRATROPIUM/ALBUTEROL NEBULIZER [Concomitant]
  3. SPIRIVA HANDIHALER [Concomitant]
  4. ADVAIR 500/50 DISKUS [Concomitant]

REACTIONS (3)
  - Sinus congestion [None]
  - Product odour abnormal [None]
  - Product taste abnormal [None]
